FAERS Safety Report 8928649 (Version 3)
Quarter: 2013Q3

REPORT INFORMATION
  Report Type: Spontaneous
  Country: US (occurrence: US)
  Receive Date: 20121128
  Receipt Date: 20130916
  Transmission Date: 20140515
  Serious: Yes (Hospitalization, Other)
  Sender: FDA-Public Use
  Company Number: US-PFIZER INC-2012297488

PATIENT
  Age: 44 Year
  Sex: Female

DRUGS (40)
  1. DILANTIN [Suspect]
     Indication: CONVULSION
     Dosage: 1000 MG, 1X/DAY
     Route: 042
     Dates: start: 20101201
  2. DILANTIN [Suspect]
     Dosage: 500 MG, 1X/DAY
     Route: 042
     Dates: start: 20101203
  3. DILANTIN [Suspect]
     Indication: CONVULSION
     Dosage: 300 MG (100MG THREE CAPSULES) , 1X/DAY
     Route: 048
     Dates: start: 20101207, end: 20110103
  4. CARDENE [Concomitant]
     Dosage: UNK
     Route: 042
     Dates: start: 20101201, end: 20101229
  5. MORPHINE [Concomitant]
     Indication: PAIN
     Dosage: 2 MG, EVERY 2HRS AS NEEDED
     Route: 042
     Dates: start: 20101202, end: 20101225
  6. HYDROCODONE W/ACETAMINOPHEN [Concomitant]
     Indication: PAIN
     Dosage: ONE 5/325MG TAB EVERY 4HRS AS NEEDED FOR MILD PAIN, 2 TABS EVERY 4 HOURS AS NEEDED FOR MODERATE PAIN
     Route: 048
     Dates: start: 20101202, end: 20101225
  7. LORAZEPAM [Concomitant]
     Indication: CONVULSION
     Dosage: 1 MG, 4X/DAY
     Route: 042
     Dates: start: 20101202, end: 20101225
  8. VECURONIUM [Concomitant]
     Dosage: 20 MG, 1X/DAY
     Route: 042
     Dates: start: 20101202, end: 20101229
  9. LABETALOL [Concomitant]
     Dosage: 10 MG, EVERY ONE HOUR AS NEEDED
     Route: 042
     Dates: start: 20101202, end: 20101229
  10. PROPOFOL [Concomitant]
     Indication: SEDATION
     Dosage: UNK
     Route: 042
     Dates: start: 20101202, end: 20101229
  11. MAGNESIUM [Concomitant]
     Dosage: 1 G, UNK
     Route: 042
     Dates: start: 20101202, end: 20101229
  12. DOCUSATE [Concomitant]
     Indication: CONSTIPATION
     Dosage: 100 MG, 2X/DAY
     Route: 048
     Dates: start: 20101202, end: 20101230
  13. ACETAMINOPHEN [Concomitant]
     Indication: PYREXIA
     Dosage: 650 MG(TWO 325MG TABLETS) , 4X/DAY AS NEEDED
     Dates: start: 20101202, end: 20110121
  14. INSULIN [Concomitant]
     Dosage: UNK
     Route: 058
     Dates: start: 20101202, end: 20101231
  15. CHLORHEXIDINE GLUCONATE [Concomitant]
     Dosage: UNK
     Route: 048
     Dates: start: 20101203, end: 20101230
  16. FAMOTIDINE [Concomitant]
     Dosage: 20 MG, 2X/DAY
     Route: 042
     Dates: start: 20101202, end: 20110114
  17. NIMODIPINE [Concomitant]
     Dosage: 60 MG (TWO 30MG CAPSULES), EVERY 4 HRS
     Dates: start: 20101202, end: 20110116
  18. DEXAMETHASONE [Concomitant]
     Dosage: 4 MG, 4X/DAY
     Route: 042
     Dates: start: 20101218
  19. PANTOPRAZOLE [Concomitant]
     Dosage: 40 MG, 1X/DAY
     Route: 042
     Dates: start: 20101202
  20. DEXAMETHASONE [Concomitant]
     Dosage: 4 MG, 2X/DAY
     Route: 048
     Dates: start: 20101208, end: 20110104
  21. PANTOPRAZOLE [Concomitant]
     Dosage: 40 MG, 1X/DAY
     Route: 048
     Dates: start: 20101208, end: 20110104
  22. PROMETHAZINE [Concomitant]
     Dosage: 12.5 MG, EVERY 4 HRS
     Route: 042
     Dates: start: 20101202, end: 20110114
  23. ALBUMIN HUMAN [Concomitant]
     Dosage: 25% OF 100 ML, EVERY 4 HRS AS NEEDED
     Route: 042
     Dates: start: 20101204, end: 20101231
  24. ZOLPIDEM [Concomitant]
     Indication: SLEEP DISORDER
     Dosage: 10 MG, AS NEEDED
     Route: 048
     Dates: start: 20101210, end: 20101219
  25. ENOXAPARIN [Concomitant]
     Dosage: 30 MG, 1X/DAY
     Route: 058
     Dates: start: 20101210, end: 20110106
  26. MAXIPIME [Concomitant]
     Dosage: 2 G, UNK
     Route: 042
     Dates: start: 20101211, end: 20101218
  27. LEVAQUIN [Concomitant]
     Dosage: 750 MG, UNK
     Route: 042
     Dates: start: 20101211, end: 20101219
  28. LEVETIRACETAM [Concomitant]
     Dosage: 500 MG, 2X/DAY
     Route: 042
     Dates: start: 20101211, end: 20110114
  29. HEPARIN [Concomitant]
     Dosage: UNK
     Route: 058
     Dates: start: 20101213, end: 20101217
  30. ROCEPHIN [Concomitant]
     Dosage: 2 G, 1X/DAY
     Route: 042
     Dates: start: 20101213, end: 20101225
  31. FENTANYL CITRATE [Concomitant]
     Dosage: UNK
     Route: 042
     Dates: start: 20101214
  32. MIDAZOLAM [Concomitant]
     Dosage: UNK
     Route: 042
     Dates: start: 20101214
  33. LIDOCAINE [Concomitant]
     Dosage: UNK
     Dates: start: 20101214
  34. IODIXANOL [Concomitant]
     Dosage: UNK
     Route: 013
     Dates: start: 20101214
  35. VANCOMYCIN [Concomitant]
     Dosage: 1 G, 2X/DAY
     Route: 042
     Dates: start: 20101218, end: 20101227
  36. MAGNESIUM HYDROXIDE [Concomitant]
     Indication: CONSTIPATION
     Dosage: 30 ML, UNK
     Route: 048
     Dates: start: 20101218, end: 20110114
  37. ALBUTEROL [Concomitant]
     Dosage: UNK
     Dates: start: 20101218, end: 20110114
  38. BISACODYL [Concomitant]
     Dosage: 10 MG, 2X/DAY
     Dates: start: 20101218, end: 20110114
  39. ONDANSETRON [Concomitant]
     Indication: NAUSEA
     Dosage: 4 MG, EVERY TWO HRS AS NEEDED
     Route: 042
     Dates: start: 20101218, end: 20110118
  40. ONDANSETRON [Concomitant]
     Indication: VOMITING

REACTIONS (2)
  - Stevens-Johnson syndrome [Recovering/Resolving]
  - Toxic epidermal necrolysis [Recovering/Resolving]
